FAERS Safety Report 8134841-4 (Version None)
Quarter: 2012Q1

REPORT INFORMATION
  Report Type: 
  Country: None (occurrence: None)
  Receive Date: 20120210
  Receipt Date: 20120130
  Transmission Date: 20120608
  Serious: No
  Sender: FDA-Public Use
  Company Number: OPER20120053

PATIENT
  Age: 63 Year
  Sex: Female
  Weight: 108.8633 kg

DRUGS (2)
  1. OPANA ER [Suspect]
     Indication: PAIN
     Dosage: 5 MG, 1 IN 1 D, ORAL
     Route: 048
     Dates: start: 20110701, end: 20110701
  2. OPANA ER [Suspect]
     Indication: PAIN
     Dosage: 10 MG, 1 IN 1 D, ORAL
     Route: 048
     Dates: start: 20110701, end: 20110701

REACTIONS (6)
  - HYPERHIDROSIS [None]
  - FEELING ABNORMAL [None]
  - HEART RATE INCREASED [None]
  - MALAISE [None]
  - PANIC DISORDER [None]
  - DRUG INEFFECTIVE [None]
